FAERS Safety Report 13733668 (Version 1)
Quarter: 2017Q3

REPORT INFORMATION
  Report Type: Spontaneous
  Country: AU (occurrence: AU)
  Receive Date: 20170707
  Receipt Date: 20170707
  Transmission Date: 20171127
  Serious: Yes (Life-Threatening, Other)
  Sender: FDA-Public Use
  Company Number: AU-MYLANLABS-2017M1040443

PATIENT

DRUGS (1)
  1. DOXYCYCLINE MYLAN [Suspect]
     Active Substance: DOXYCYCLINE
     Indication: ACNE
     Dosage: UNK

REACTIONS (3)
  - Confusional state [Unknown]
  - Suicide attempt [Recovered/Resolved]
  - Fatigue [Unknown]

NARRATIVE: CASE EVENT DATE: 20170617
